FAERS Safety Report 25342555 (Version 2)
Quarter: 2025Q3

REPORT INFORMATION
  Report Type: Spontaneous
  Country: US (occurrence: US)
  Receive Date: 20250521
  Receipt Date: 20250902
  Transmission Date: 20251020
  Serious: No
  Sender: CATALYST PHARMA
  Company Number: US-CATALYST PHARMACEUTICALS-US-CATA-25-00561

PATIENT
  Age: 7 Year
  Sex: Male
  Weight: 30.113 kg

DRUGS (13)
  1. AGAMREE [Suspect]
     Active Substance: VAMOROLONE
     Indication: Duchenne muscular dystrophy
     Dosage: 3.4ML DAILY
     Route: 048
     Dates: start: 20240719
  2. CLONIDINE HYDROCHLORIDE [Concomitant]
     Active Substance: CLONIDINE HYDROCHLORIDE
     Indication: Insomnia
     Dosage: 0.2 MG DAILY
     Route: 048
  3. CLONIDINE HYDROCHLORIDE [Concomitant]
     Active Substance: CLONIDINE HYDROCHLORIDE
     Dosage: 0.2 MG EVERY NIGHT AT BEDTIME
     Route: 048
  4. CVS MELATONIN [Concomitant]
     Indication: Insomnia
     Dosage: 3 MG DAILY
     Route: 048
  5. CVS MELATONIN [Concomitant]
     Dosage: 3 MG EVERY NIGHT AT BEDTIME
     Route: 048
  6. QELBREE [Concomitant]
     Active Substance: VILOXAZINE HYDROCHLORIDE
     Indication: Affective disorder
     Dosage: 300 MG DAILY
     Route: 065
  7. QELBREE [Concomitant]
     Active Substance: VILOXAZINE HYDROCHLORIDE
     Dosage: 400 MG EVERY MORNING
     Route: 048
  8. ZOLOFT [Concomitant]
     Active Substance: SERTRALINE HYDROCHLORIDE
     Indication: Affective disorder
     Dosage: 50 MG DAILY
     Route: 048
  9. GABAPENTIN [Concomitant]
     Active Substance: GABAPENTIN
     Indication: Pain
     Dosage: 100 MG ONCE DAILY IN THE MORNING; 200 MG AT EVERY NIGHT
     Route: 048
  10. CHILDRENS ZYRTEC [Concomitant]
     Active Substance: CETIRIZINE HYDROCHLORIDE
     Indication: Seasonal allergy
     Dosage: 5 ML DAILY
     Route: 065
  11. CHILDRENS ZYRTEC [Concomitant]
     Active Substance: CETIRIZINE HYDROCHLORIDE
     Dosage: 5 MG PER 5ML DAILY
     Route: 048
  12. VITAMIN D3 [Concomitant]
     Active Substance: CHOLECALCIFEROL
     Indication: Hypovitaminosis
     Dosage: (25MCG) 1000 UNITS DAILY
     Route: 048
  13. KIDS MULTIVITAMIN GUMMIES [Concomitant]
     Indication: Hypovitaminosis
     Dosage: ONE TABLET DAILY
     Route: 065

REACTIONS (2)
  - Affect lability [Not Recovered/Not Resolved]
  - Weight increased [Not Recovered/Not Resolved]

NARRATIVE: CASE EVENT DATE: 20240801
